FAERS Safety Report 17034006 (Version 1)
Quarter: 2019Q4

REPORT INFORMATION
  Report Type: Spontaneous
  Country: US (occurrence: US)
  Receive Date: 20191114
  Receipt Date: 20191114
  Transmission Date: 20200122
  Serious: No
  Sender: FDA-Public Use
  Company Number: NVSC2019US034555

PATIENT
  Sex: Male

DRUGS (1)
  1. AFINITOR [Suspect]
     Active Substance: EVEROLIMUS
     Indication: TUBEROUS SCLEROSIS COMPLEX
     Dosage: 1 OT, QD
     Route: 048
     Dates: start: 20191015, end: 20191031

REACTIONS (3)
  - Urticaria [Unknown]
  - Aphthous ulcer [Unknown]
  - Throat tightness [Unknown]
